FAERS Safety Report 10358789 (Version 1)
Quarter: 2014Q3

REPORT INFORMATION
  Report Type: Spontaneous
  Country: FR (occurrence: FR)
  Receive Date: 20140804
  Receipt Date: 20140804
  Transmission Date: 20150326
  Serious: Yes (Hospitalization)
  Sender: FDA-Public Use
  Company Number: FR-ROCHE-1444355

PATIENT
  Sex: Female

DRUGS (2)
  1. MABTHERA [Suspect]
     Active Substance: RITUXIMAB
     Dosage: NEW INFUSION
     Route: 042
     Dates: start: 20140324
  2. MABTHERA [Suspect]
     Active Substance: RITUXIMAB
     Indication: LUPUS-LIKE SYNDROME
     Dosage: SECOND INFUSION
     Route: 042
     Dates: start: 20140310

REACTIONS (2)
  - Pyrexia [Recovered/Resolved]
  - Purpura [Recovered/Resolved]

NARRATIVE: CASE EVENT DATE: 20140311
